FAERS Safety Report 20893553 (Version 4)
Quarter: 2023Q4

REPORT INFORMATION
  Report Type: Spontaneous
  Country: US (occurrence: US)
  Receive Date: 20220531
  Receipt Date: 20231012
  Transmission Date: 20240110
  Serious: Yes (Other)
  Sender: FDA-Public Use
  Company Number: US-BRISTOL-MYERS SQUIBB COMPANY-2022-045792

PATIENT
  Age: 70 Year
  Sex: Male
  Weight: 121.11 kg

DRUGS (40)
  1. REVLIMID [Suspect]
     Active Substance: LENALIDOMIDE
     Indication: Plasma cell myeloma
     Dosage: TAKE 1 CAPSULE BY MOUTH DAILY FOR 21 DAYS FOLLOWED BY 7 DAYS OFF. ONCE DAILY X 21 DAYS THEN 7 DAYS O
     Route: 048
     Dates: start: 20210605
  2. REVLIMID [Suspect]
     Active Substance: LENALIDOMIDE
     Dosage: ONCE DAILY X 21 DAYS THEN 7 DAYS OFF
     Route: 048
     Dates: start: 20220701
  3. REFRESH P.M. [Concomitant]
     Active Substance: MINERAL OIL\PETROLATUM
     Indication: Product used for unknown indication
     Dosage: 3.5 GM
     Route: 047
  4. VITAMIN B12 [Concomitant]
     Active Substance: CYANOCOBALAMIN
     Indication: Product used for unknown indication
  5. ZOLEDRONIC [Concomitant]
     Active Substance: ZOLEDRONIC ACID
     Indication: Product used for unknown indication
     Dosage: 5MG/100ML
  6. ALLEGRA [Concomitant]
     Active Substance: FEXOFENADINE HYDROCHLORIDE
     Indication: Product used for unknown indication
  7. ASPIRIN [Concomitant]
     Active Substance: ASPIRIN
     Indication: Product used for unknown indication
  8. CENTRUM [ASCORBIC ACID;BIOTIN;CALCIUM PANTOTHENATE;CALCIUM PHOSPHATE;C [Concomitant]
     Indication: Product used for unknown indication
  9. FLUTICASONE [Concomitant]
     Active Substance: FLUTICASONE
     Indication: Product used for unknown indication
  10. IBUPROFEN [Concomitant]
     Active Substance: IBUPROFEN
     Indication: Product used for unknown indication
  11. TYLENOL [Concomitant]
     Active Substance: ACETAMINOPHEN
     Indication: Product used for unknown indication
  12. DEXAMETHASONE [Concomitant]
     Active Substance: DEXAMETHASONE
     Indication: Product used for unknown indication
  13. VELCADE [Concomitant]
     Active Substance: BORTEZOMIB
     Indication: Product used for unknown indication
     Dosage: 1 VIAL
  14. ACYCLOVIR [Concomitant]
     Active Substance: ACYCLOVIR
     Dosage: LAST SOLD DATE: 02-DEC-2022
     Route: 048
  15. ACYCLOVIR [Concomitant]
     Active Substance: ACYCLOVIR
     Dosage: LAST SOLD DATE: 02-DEC-2022
     Route: 048
  16. AMLODIPINE BESYLATE [Concomitant]
     Active Substance: AMLODIPINE BESYLATE
     Route: 048
  17. BUPROPION [Concomitant]
     Active Substance: BUPROPION
     Dosage: EVERYDAY ON THE MORNING
     Route: 048
  18. PFIZER-BIONTECH COVID-19 VACCINE [Concomitant]
     Active Substance: TOZINAMERAN
     Route: 030
  19. DESVENLAFAXINE SUCCINATE [Concomitant]
     Active Substance: DESVENLAFAXINE SUCCINATE
     Dosage: EVERY MORNING, LAST SOLD DATE: 26-JUN-2023
  20. DESVENLAFAXINE SUCCINATE [Concomitant]
     Active Substance: DESVENLAFAXINE SUCCINATE
     Dosage: EVERY MORNING, LAST SOLD DATE: 26-MAY-2022
  21. DESVENLAFAXINE SUCCINATE [Concomitant]
     Active Substance: DESVENLAFAXINE SUCCINATE
     Dosage: EVERY MORNING, LAST SOLD DATE: 10-SEP-2023, ER TABLET
  22. DESVENLAFAXINE SUCCINATE [Concomitant]
     Active Substance: DESVENLAFAXINE SUCCINATE
     Dosage: EVERY MORNING, LAST SOLD DATE: 30-AUG-2022, ER TABLET
  23. FLUAD QUAD [Concomitant]
     Route: 030
  24. FUROSEMIDE [Concomitant]
     Active Substance: FUROSEMIDE
     Dosage: LAST SOLD DATE: 24-JUL-2023
     Route: 048
  25. ICOSAPENT ETHYL [Concomitant]
     Active Substance: ICOSAPENT ETHYL
     Dosage: WITH FOOD. SWALLOW WHOLE AND DO NOT CHEW OR OPEN OR DISSOLVE OR CRUSH
     Route: 048
  26. LEVOTHYROXINE [Concomitant]
     Active Substance: LEVOTHYROXINE
     Route: 048
  27. LEVOTHYROXINE [Concomitant]
     Active Substance: LEVOTHYROXINE
     Route: 048
  28. LEVOTHYROXINE [Concomitant]
     Active Substance: LEVOTHYROXINE
     Dosage: EVERY DAY
     Route: 048
  29. LISINOPRIL [Concomitant]
     Active Substance: LISINOPRIL
     Route: 048
  30. METOPROLOL SUCCINATE [Concomitant]
     Active Substance: METOPROLOL SUCCINATE
     Route: 048
  31. OMEPRAZOLE [Concomitant]
     Active Substance: OMEPRAZOLE
     Route: 048
  32. ROSUVASTATIN [Concomitant]
     Active Substance: ROSUVASTATIN
     Route: 048
  33. SUPREP BOWEL PREP [Concomitant]
     Active Substance: MAGNESIUM SULFATE\POTASSIUM SULFATE\SODIUM SULFATE
     Dosage: 1 KIT CONTAINER BY MOUTH
     Route: 048
  34. BENZONATATE [Concomitant]
     Active Substance: BENZONATATE
     Dosage: THREE TIMES DAILY FOR 15 DAYS AS NEEDED. LAST SOLD DATE: 07-OCT-2023
     Route: 048
  35. FLUZONE HIGH-DOSE NOS [Concomitant]
     Active Substance: INFLUENZA A VIRUS A/CALIFORNIA/7/2009 X-179A (H1N1) ANTIGEN (FORMALDEHYDE INACTIVATED)\INFLUENZA A V
     Dosage: ADMINISTERED 0.7 ML IN THE MUSCLE AS DIRECTED TODAY. LAST SOLD DATE: 09-OCT-2023?HD 65 PLUS PF  2023
  36. IPRATROPIUM [Concomitant]
     Active Substance: IPRATROPIUM
     Dosage: USE 2 SPRAY IN EACH NOSTRIL THREE TIMES DAILY AS NEEDED
  37. LISINOPRIL AND HYDROCHLOROTHIAZIDE [Concomitant]
     Active Substance: HYDROCHLOROTHIAZIDE\LISINOPRIL
     Dosage: 20/25 MG
     Route: 048
  38. LORAZEPAM [Concomitant]
     Active Substance: LORAZEPAM
     Indication: Anxiety
     Dosage: EVERY 8 HOURS AS NEEDED
     Route: 048
  39. MOXIFLOXACIN [Concomitant]
     Active Substance: MOXIFLOXACIN
     Dosage: SOLUTION 3 ML, INSTILL 1 DROP INTO SURGERY EYE FOUR TIMES DAILY STARTING 3 DAYS BEFORE SURGERY AND C
  40. XGEVA [Concomitant]
     Active Substance: DENOSUMAB
     Dosage: 120 MG/ 1.7 ML

REACTIONS (7)
  - Musculoskeletal chest pain [Not Recovered/Not Resolved]
  - Back pain [Not Recovered/Not Resolved]
  - Paraesthesia [Not Recovered/Not Resolved]
  - Diarrhoea [Not Recovered/Not Resolved]
  - Decreased appetite [Unknown]
  - Constipation [Not Recovered/Not Resolved]
  - Fatigue [Not Recovered/Not Resolved]

NARRATIVE: CASE EVENT DATE: 20210701
